FAERS Safety Report 21360777 (Version 1)
Quarter: 2022Q3

REPORT INFORMATION
  Report Type: Spontaneous
  Country: GB (occurrence: None)
  Receive Date: 20220921
  Receipt Date: 20220921
  Transmission Date: 20221027
  Serious: Yes (Other)
  Sender: FDA-Public Use
  Company Number: 2022A316415

PATIENT
  Age: 74 Year
  Sex: Female
  Weight: 89 kg

DRUGS (8)
  1. DAPAGLIFLOZIN [Suspect]
     Active Substance: DAPAGLIFLOZIN
     Indication: Diabetes mellitus
     Dosage: 10MG ONCE A DAY
     Route: 065
     Dates: start: 20210101
  2. ASPIRIN [Concomitant]
     Active Substance: ASPIRIN
     Indication: Adverse drug reaction
     Route: 065
     Dates: start: 20150101
  3. GLUCOPHAGE XR [Concomitant]
     Active Substance: METFORMIN HYDROCHLORIDE
     Indication: Diabetes mellitus
     Route: 065
     Dates: start: 20100101
  4. QUININE SULFATE [Concomitant]
     Active Substance: QUININE SULFATE
     Indication: Muscle spasms
     Route: 065
     Dates: start: 20160101
  5. RAMIPRIL [Concomitant]
     Active Substance: RAMIPRIL
     Indication: Blood pressure measurement
     Dates: start: 20150101
  6. RYBELSUS [Concomitant]
     Active Substance: SEMAGLUTIDE
     Indication: Adverse drug reaction
     Route: 065
     Dates: start: 20210901
  7. ACETAMINOPHEN [Concomitant]
     Active Substance: ACETAMINOPHEN
     Indication: Adverse drug reaction
  8. COCODAMAL [Concomitant]
     Indication: Adverse drug reaction

REACTIONS (1)
  - Vaginal haemorrhage [Not Recovered/Not Resolved]

NARRATIVE: CASE EVENT DATE: 20220501
